FAERS Safety Report 5728853-5 (Version None)
Quarter: 2008Q2

REPORT INFORMATION
  Report Type: 
  Country: None (occurrence: None)
  Receive Date: 20080506
  Receipt Date: 20080425
  Transmission Date: 20081010
  Serious: Yes (Other)
  Sender: FDA-Public Use
  Company Number: US-BAYER-200810576BCC

PATIENT
  Age: 51 Year
  Sex: Female
  Weight: 73 kg

DRUGS (10)
  1. BAYER EXTRA STRENGTH BACK AND BODY [Suspect]
     Indication: BACK PAIN
     Dosage: TOTAL DAILY DOSE: 1000 MG  UNIT DOSE: 500 MG
     Route: 048
     Dates: start: 20080204, end: 20080204
  2. MULTIVITAMIN GENERIC [Concomitant]
     Route: 048
  3. NORTREL 1/35 [Concomitant]
  4. FLEXERIL [Concomitant]
  5. MINERAL TAB [Concomitant]
  6. ASCORBIC ACID [Concomitant]
  7. VITAMIN E [Concomitant]
  8. COQ10 [Concomitant]
  9. NIACIN [Concomitant]
  10. FISH OIL [Concomitant]

REACTIONS (7)
  - BLOOD CAFFEINE INCREASED [None]
  - BLOOD PRESSURE INCREASED [None]
  - CHEST PAIN [None]
  - DYSPEPSIA [None]
  - HEADACHE [None]
  - HEART RATE INCREASED [None]
  - NERVOUSNESS [None]
